FAERS Safety Report 10511835 (Version 1)
Quarter: 2014Q3

REPORT INFORMATION
  Report Type: Spontaneous
  Country: US (occurrence: None)
  Receive Date: 20140926
  Receipt Date: 20140926
  Transmission Date: 20150326
  Serious: No
  Sender: FDA-Public Use
  Company Number: 1000068222

PATIENT
  Age: 61 Year
  Sex: Female

DRUGS (4)
  1. HYPERTENSION MEDICATIONS NOSE [Concomitant]
  2. HIGH CHOLESTEROL MEDICATIONS NOS [Concomitant]
  3. LINZESS [Suspect]
     Active Substance: LINACLOTIDE
     Indication: DIVERTICULITIS
     Route: 048
     Dates: start: 20140611
  4. GLIPIZIDE. [Concomitant]
     Active Substance: GLIPIZIDE

REACTIONS (2)
  - Off label use [None]
  - Decreased appetite [None]

NARRATIVE: CASE EVENT DATE: 20140611
